FAERS Safety Report 8854618 (Version 2)
Quarter: 2012Q4

REPORT INFORMATION
  Report Type: 
  Country: US (occurrence: US)
  Receive Date: 20121023
  Receipt Date: 20121029
  Transmission Date: 20130627
  Serious: Yes (Hospitalization)
  Sender: FDA-Public Use
  Company Number: US-B.I. PHARMACEUTICALS,INC./RIDGEFIELD-2012-BP-25852BP

PATIENT
  Sex: Female
  Weight: 95 kg

DRUGS (14)
  1. PRADAXA [Suspect]
     Indication: ATRIAL FIBRILLATION
     Dosage: 300 mg
     Route: 048
     Dates: start: 201111
  2. POTASSIUM [Concomitant]
     Indication: HYPOKALAEMIA
     Dosage: 20 RT
     Route: 048
  3. SOTALOL [Concomitant]
     Indication: DRUG THERAPY
     Dosage: 240 mg
     Route: 048
     Dates: start: 201111
  4. SPIRONOLACTONE [Concomitant]
     Indication: DIURETIC THERAPY
     Dosage: 50 mg
     Route: 048
  5. EXFORGE [Concomitant]
     Indication: HYPERTENSION
     Route: 048
  6. NORVASC [Concomitant]
     Indication: HYPERTENSION
     Dosage: 5 mg
     Route: 048
  7. LOSARTAN [Concomitant]
     Indication: HYPERTENSION
     Route: 048
  8. OMEGA 3 [Concomitant]
     Indication: SUPPLEMENTATION THERAPY
     Route: 048
  9. KELP [Concomitant]
     Indication: SUPPLEMENTATION THERAPY
     Route: 048
  10. MELATONIN [Concomitant]
     Indication: SUPPLEMENTATION THERAPY
     Route: 048
  11. WOMENS VITAMIN [Concomitant]
     Indication: SUPPLEMENTATION THERAPY
     Route: 048
  12. COQ 10 [Concomitant]
     Indication: SUPPLEMENTATION THERAPY
     Route: 048
  13. METOPROLOL [Concomitant]
     Indication: HYPERTENSION
     Dosage: 25 mg
     Route: 048
     Dates: end: 201111
  14. HYDRALAZINE [Concomitant]
     Indication: HYPERTENSION
     Dosage: 100 mg
     Route: 048
     Dates: start: 201112

REACTIONS (3)
  - Atrial flutter [Recovered/Resolved]
  - Hypertension [Recovered/Resolved]
  - Bradycardia [Recovered/Resolved]
